FAERS Safety Report 8465263-4 (Version None)
Quarter: 2012Q2

REPORT INFORMATION
  Report Type: 
  Country: None (occurrence: None)
  Receive Date: 20120626
  Receipt Date: 20120621
  Transmission Date: 20120825
  Serious: Yes (Other)
  Sender: FDA-Public Use
  Company Number: PHHY2012AR053548

PATIENT
  Sex: Female

DRUGS (1)
  1. ZOLEDRONOC ACID [Suspect]
     Indication: BONE DENSITY ABNORMAL
     Dosage: UNK
     Route: 042
     Dates: start: 20090101, end: 20110101

REACTIONS (1)
  - CONJUNCTIVITIS BACTERIAL [None]
